FAERS Safety Report 5398626-4 (Version None)
Quarter: 2007Q3

REPORT INFORMATION
  Report Type: 
  Country: None (occurrence: None)
  Receive Date: 20070726
  Receipt Date: 20060712
  Transmission Date: 20080115
  Serious: No
  Sender: FDA-Public Use
  Company Number: US-AMGEN-KDL178971

PATIENT
  Age: 50 Year
  Sex: Female

DRUGS (3)
  1. PROCRIT [Suspect]
     Indication: ANAEMIA
     Route: 058
     Dates: start: 20050101
  2. AVAPRO [Concomitant]
     Route: 048
  3. AVALIDE [Concomitant]
     Route: 048

REACTIONS (3)
  - BONE PAIN [None]
  - INJECTION SITE PAIN [None]
  - INSOMNIA [None]
